FAERS Safety Report 18438542 (Version 2)
Quarter: 2020Q4

REPORT INFORMATION
  Report Type: Spontaneous
  Country: US (occurrence: US)
  Receive Date: 20201028
  Receipt Date: 20201223
  Transmission Date: 20210114
  Serious: No
  Sender: FDA-Public Use
  Company Number: US-BIOGEN-2020BI00939031

PATIENT
  Sex: Female

DRUGS (1)
  1. TYSABRI [Suspect]
     Active Substance: NATALIZUMAB
     Indication: MULTIPLE SCLEROSIS
     Route: 065
     Dates: start: 20160512

REACTIONS (6)
  - Panic reaction [Recovered/Resolved]
  - Mobility decreased [Recovered/Resolved]
  - Memory impairment [Recovered/Resolved]
  - Dyspnoea [Recovered/Resolved]
  - Prescribed underdose [Recovered/Resolved]
  - Temperature intolerance [Recovered/Resolved]
